FAERS Safety Report 24453124 (Version 2)
Quarter: 2024Q4

REPORT INFORMATION
  Report Type: Report from Study
  Country: ZA (occurrence: ZA)
  Receive Date: 20241017
  Receipt Date: 20241018
  Transmission Date: 20250114
  Serious: No
  Sender: ROCHE
  Company Number: ZA-ROCHE-3182041

PATIENT
  Age: 40 Year
  Sex: Female

DRUGS (7)
  1. RITUXIMAB [Suspect]
     Active Substance: RITUXIMAB
     Indication: Rheumatoid arthritis
     Dosage: REPEATED 6-MONTHLY, PATIENT RECEIVED INFUSION ON 26/SEP AND 10/OCT/2022.
     Route: 041
     Dates: start: 20220920
  2. RITUXIMAB [Suspect]
     Active Substance: RITUXIMAB
     Indication: Sjogren^s syndrome
  3. METHOTREXATE [Concomitant]
     Active Substance: METHOTREXATE
     Dates: start: 201302
  4. METHOTREXATE [Concomitant]
     Active Substance: METHOTREXATE
     Route: 058
     Dates: start: 201403
  5. CHLOROQUINE [Concomitant]
     Active Substance: CHLOROQUINE
     Dates: start: 201011
  6. PREDNISONE [Concomitant]
     Active Substance: PREDNISONE
  7. LEFLUNOMIDE [Concomitant]
     Active Substance: LEFLUNOMIDE
     Dates: start: 201102

REACTIONS (4)
  - C-reactive protein increased [Unknown]
  - Parotitis [Unknown]
  - Swelling [Unknown]
  - Pain [Unknown]

NARRATIVE: CASE EVENT DATE: 20230116
